FAERS Safety Report 11072936 (Version 1)
Quarter: 2015Q2

REPORT INFORMATION
  Report Type: Report from Study
  Country: US (occurrence: US)
  Receive Date: 20150428
  Receipt Date: 20150428
  Transmission Date: 20150821
  Serious: Yes (Other)
  Sender: FDA-Public Use
  Company Number: US-SA-2015SA043747

PATIENT
  Sex: Male

DRUGS (1)
  1. AUBAGIO [Suspect]
     Active Substance: TERIFLUNOMIDE
     Indication: MULTIPLE SCLEROSIS
     Route: 065

REACTIONS (7)
  - Blindness [Unknown]
  - Vision blurred [Unknown]
  - Weight decreased [Unknown]
  - International normalised ratio abnormal [Unknown]
  - Fatigue [Unknown]
  - Decreased appetite [Unknown]
  - Blood pressure increased [Unknown]
